FAERS Safety Report 5772278-3 (Version None)
Quarter: 2008Q2

REPORT INFORMATION
  Report Type: 
  Country: None (occurrence: None)
  Receive Date: 20080613
  Receipt Date: 20080605
  Transmission Date: 20081010
  Serious: Yes (Hospitalization)
  Sender: FDA-Public Use
  Company Number: PHHY2008MX10050

PATIENT
  Sex: Male

DRUGS (2)
  1. DIOVAN HCT [Suspect]
     Indication: HYPERTENSION
     Dosage: 2 TABLETS (80/12.5 MG) PER DAY
     Route: 048
     Dates: start: 20050101, end: 20080605
  2. DIOVAN HCT [Suspect]
     Dosage: 1 TABLET  (80/12.5 MG) PER DAY
     Route: 048
     Dates: start: 20080605

REACTIONS (2)
  - HAEMORRHAGE [None]
  - HYPERTENSION [None]
